FAERS Safety Report 5805620-5 (Version None)
Quarter: 2008Q3

REPORT INFORMATION
  Report Type: 
  Country: None (occurrence: None)
  Receive Date: 20080710
  Receipt Date: 20080320
  Transmission Date: 20090109
  Serious: No
  Sender: FDA-Public Use
  Company Number: US-BAYER-200817806NA

PATIENT
  Age: 32 Year
  Sex: Female
  Weight: 127 kg

DRUGS (2)
  1. MIRENA [Suspect]
     Indication: CONTRACEPTION
     Route: 015
     Dates: start: 20080101
  2. SYNTHROID [Concomitant]
     Indication: DRUG USE FOR UNKNOWN INDICATION

REACTIONS (5)
  - ACNE [None]
  - BACK PAIN [None]
  - HEADACHE [None]
  - IRRITABILITY [None]
  - WEIGHT INCREASED [None]
